FAERS Safety Report 4417267-6 (Version None)
Quarter: 2004Q3

REPORT INFORMATION
  Report Type: 
  Country: None (occurrence: None)
  Receive Date: 20040806
  Receipt Date: 20040621
  Transmission Date: 20050211
  Serious: Yes (Other)
  Sender: FDA-Public Use
  Company Number: NL-GLAXOSMITHKLINE-B0337226A

PATIENT
  Age: 67 Year
  Sex: Male
  Weight: 82 kg

DRUGS (2)
  1. DUTASTERIDE [Suspect]
     Dosage: .5MG PER DAY
     Dates: start: 20040517
  2. FLECAINIDE ACETATE [Concomitant]
     Dosage: 100MG TWICE PER DAY
     Route: 065

REACTIONS (4)
  - ARRHYTHMIA [None]
  - BRADYCARDIA [None]
  - CONDITION AGGRAVATED [None]
  - TACHYCARDIA [None]
